FAERS Safety Report 5549822-4 (Version None)
Quarter: 2007Q4

REPORT INFORMATION
  Report Type: 
  Country: None (occurrence: None)
  Receive Date: 20071212
  Receipt Date: 20071204
  Transmission Date: 20080405
  Serious: Yes (Life-Threatening, Hospitalization)
  Sender: FDA-Public Use
  Company Number: AT-BRISTOL-MYERS SQUIBB COMPANY-14010391

PATIENT
  Age: 59 Year
  Sex: Male

DRUGS (1)
  1. LYSODREN [Suspect]
     Indication: ADRENAL CARCINOMA
     Dosage: TOTAL DOSE OF 521.5 G
     Route: 048
     Dates: start: 20070807, end: 20071127

REACTIONS (3)
  - DEHYDRATION [None]
  - FATIGUE [None]
  - HYPOTENSION [None]
